FAERS Safety Report 7220160-7 (Version None)
Quarter: 2011Q1

REPORT INFORMATION
  Report Type: 
  Country: None (occurrence: None)
  Receive Date: 20110111
  Receipt Date: 20110104
  Transmission Date: 20110831
  Serious: Yes (Other)
  Sender: FDA-Public Use
  Company Number: PL-GENZYME-CAMP-1001248

PATIENT
  Sex: Female
  Weight: 59 kg

DRUGS (8)
  1. ALEMTUZUMAB [Suspect]
     Indication: MULTIPLE SCLEROSIS
     Dosage: 12 MG, QDX5
     Dates: start: 20090223, end: 20090227
  2. PAROXETINE [Concomitant]
     Indication: PRODUCT USED FOR UNKNOWN INDICATION
     Dosage: 30 MG, 10 MG IN THE MORNING, 20 MG IN THE EVENING.
     Route: 048
     Dates: start: 20090512
  3. ALPRAZOLAM [Concomitant]
     Indication: ANXIETY DISORDER
     Dosage: 0.5 MG, PRN
     Route: 048
     Dates: start: 20080801
  4. METHYLPREDNISOLONE [Concomitant]
     Indication: MULTIPLE SCLEROSIS
     Dosage: 1.0 G, QDX3
     Route: 042
     Dates: start: 20090223, end: 20090225
  5. FLUPENTIXOL [Concomitant]
     Indication: ANXIETY DISORDER
     Dosage: 0.5 MG, QD
     Route: 048
     Dates: start: 20080801, end: 20090511
  6. FLUPENTIXOL [Concomitant]
     Indication: PRODUCT USED FOR UNKNOWN INDICATION
     Dosage: 0.75 MCG, QD
     Route: 048
     Dates: start: 20090512
  7. PAROXETINE [Concomitant]
     Indication: ANXIETY DISORDER
     Dosage: 20 MG, QD
     Route: 048
     Dates: start: 20080801, end: 20090511
  8. CIPROFLOXACIN HCL [Concomitant]
     Indication: PRODUCT USED FOR UNKNOWN INDICATION
     Dosage: 500 MCG, BID
     Route: 048
     Dates: start: 20090417, end: 20090421

REACTIONS (1)
  - ABORTION SPONTANEOUS [None]
